FAERS Safety Report 19169931 (Version 2)
Quarter: 2021Q2

REPORT INFORMATION
  Report Type: Report from Study
  Country: JP (occurrence: JP)
  Receive Date: 20210422
  Receipt Date: 20210504
  Transmission Date: 20210717
  Serious: Yes (Hospitalization)
  Sender: FDA-Public Use
  Company Number: JP-TAIHO ONCOLOGY  INC-CN-2021-00033

PATIENT
  Age: 81 Year
  Sex: Male
  Weight: 44 kg

DRUGS (1)
  1. BLINDED BLINDED TAS?102 [Suspect]
     Active Substance: TIPIRACIL HYDROCHLORIDE\TRIFLURIDINE
     Indication: COLON CANCER
     Dosage: 5?DAY?ON 2?DAY?OFF (REPEATING 2 TIMES), THEN 14?DAY REST
     Route: 048
     Dates: start: 20210331, end: 20210409

REACTIONS (2)
  - Aspiration [Recovered/Resolved]
  - Ileus [Recovered/Resolved]

NARRATIVE: CASE EVENT DATE: 20210414
